FAERS Safety Report 17054089 (Version 2)
Quarter: 2019Q4

REPORT INFORMATION
  Report Type: Report from Study
  Country: US (occurrence: US)
  Receive Date: 20191120
  Receipt Date: 20191129
  Transmission Date: 20200122
  Serious: Yes (Hospitalization)
  Sender: FDA-Public Use
  Company Number: NVSC2019US038493

PATIENT
  Age: 7 Year
  Sex: Female

DRUGS (10)
  1. INC424A [Suspect]
     Active Substance: RUXOLITINIB
     Indication: ACUTE LYMPHOCYTIC LEUKAEMIA
     Dosage: 40 MILLIGRAM, QD FOR 14 DAYS
     Route: 048
     Dates: start: 20190627
  2. VINCRISTINE [Suspect]
     Active Substance: VINCRISTINE
     Indication: ACUTE LYMPHOCYTIC LEUKAEMIA
     Dosage: 1 MILLIGRAM, TWICE MONTHLY
     Route: 042
     Dates: start: 20190515
  3. METHOTREXATE. [Suspect]
     Active Substance: METHOTREXATE
     Indication: PRODUCT USED FOR UNKNOWN INDICATION
     Dosage: 400MG/3600 MG, TWICE MONTLY
     Route: 042
     Dates: start: 20190523
  4. METHOTREXATE. [Suspect]
     Active Substance: METHOTREXATE
     Dosage: 400MG/3600 MG, TWICE MONTLY
     Route: 042
     Dates: start: 20190910
  5. HYDROCORTISONE. [Concomitant]
     Active Substance: HYDROCORTISONE
     Indication: ACUTE LYMPHOCYTIC LEUKAEMIA
     Dosage: 12 MILLIGRAM
     Route: 037
     Dates: start: 20190531
  6. METHOTREXATE. [Suspect]
     Active Substance: METHOTREXATE
     Dosage: 12 MILLIGRAM, ONCE
     Route: 037
     Dates: start: 20191031
  7. MERCAPTOPURINE. [Suspect]
     Active Substance: MERCAPTOPURINE
     Indication: ACUTE LYMPHOCYTIC LEUKAEMIA
     Dosage: 25 MILLIGRAM, 5 DAYS PER WEEK
     Route: 048
     Dates: start: 20190627
  8. CYTARABINE. [Suspect]
     Active Substance: CYTARABINE
     Indication: ACUTE LYMPHOCYTIC LEUKAEMIA
     Dosage: 24 MILLIGRAM
     Route: 037
     Dates: start: 20190531
  9. METHOTREXATE. [Suspect]
     Active Substance: METHOTREXATE
     Dosage: 12 MILLIGRAM
     Route: 037
     Dates: start: 20190531
  10. CYTARABINE. [Suspect]
     Active Substance: CYTARABINE
     Dosage: 12 MILLIGRAM, ONCE
     Route: 037
     Dates: start: 20191031

REACTIONS (1)
  - Mucosal inflammation [Recovered/Resolved]

NARRATIVE: CASE EVENT DATE: 20191107
